FAERS Safety Report 6334942-7 (Version None)
Quarter: 2009Q3

REPORT INFORMATION
  Report Type: 
  Country: None (occurrence: None)
  Receive Date: 20090831
  Receipt Date: 20090409
  Transmission Date: 20100115
  Serious: Yes (Other)
  Sender: FDA-Public Use
  Company Number: US-BAYER-200920276NA

PATIENT
  Age: 63 Year
  Sex: Female
  Weight: 66 kg

DRUGS (11)
  1. MAGNEVIST [Suspect]
     Indication: DRUG USE FOR UNKNOWN INDICATION
  2. GADOLINIUM [Suspect]
     Indication: ANGIOGRAM
     Dosage: AS USED: 40 ML
     Route: 042
     Dates: start: 20021021, end: 20021021
  3. PRAVACHOL [Concomitant]
  4. ZETIA [Concomitant]
  5. FERROUS SULFATE TAB [Concomitant]
  6. METOPROLOL [Concomitant]
  7. AMBIEN [Concomitant]
  8. ASPIRIN [Concomitant]
  9. LASIX [Concomitant]
  10. EPOGEN [Concomitant]
     Dosage: DURING DIALYSIS
     Dates: start: 20021101
  11. HYDRALAZINE HCL [Concomitant]

REACTIONS (15)
  - DYSPNOEA [None]
  - HYPOAESTHESIA [None]
  - NEPHROGENIC SYSTEMIC FIBROSIS [None]
  - OEDEMA PERIPHERAL [None]
  - PAIN OF SKIN [None]
  - PRURITUS [None]
  - RASH MACULAR [None]
  - SKIN ATROPHY [None]
  - SKIN BURNING SENSATION [None]
  - SKIN HYPERPIGMENTATION [None]
  - SKIN INDURATION [None]
  - SKIN LESION [None]
  - SKIN TIGHTNESS [None]
  - STEVENS-JOHNSON SYNDROME [None]
  - TRAUMATIC LUNG INJURY [None]
